FAERS Safety Report 19821046 (Version 1)
Quarter: 2021Q3

REPORT INFORMATION
  Report Type: Spontaneous
  Country: IT (occurrence: IT)
  Receive Date: 20210913
  Receipt Date: 20210913
  Transmission Date: 20211014
  Serious: Yes (Other)
  Sender: FDA-Public Use
  Company Number: IT-ACCORD-238058

PATIENT
  Age: 70 Year
  Sex: Male
  Weight: 79 kg

DRUGS (12)
  1. FLUOROURACIL AHCL [Suspect]
     Active Substance: FLUOROURACIL
     Indication: OESOPHAGEAL ADENOCARCINOMA
     Route: 042
     Dates: start: 20210712, end: 20210713
  2. DEURSIL [Concomitant]
     Active Substance: URSODIOL
     Route: 048
  3. ESAPENT [Concomitant]
     Route: 048
  4. ACETYLSALICYLIC ACID [Concomitant]
     Active Substance: ASPIRIN
     Route: 048
  5. FLUOROURACIL AHCL [Concomitant]
     Active Substance: FLUOROURACIL
     Indication: OESOPHAGEAL ADENOCARCINOMA
     Dosage: 50 MG / ML
     Route: 042
     Dates: start: 20210712, end: 20210712
  6. OMEPRAZOLE. [Concomitant]
     Active Substance: OMEPRAZOLE
     Route: 042
     Dates: start: 20210712, end: 20210712
  7. ONDANSETRON [Concomitant]
     Active Substance: ONDANSETRON
     Route: 042
  8. SODIUM LEVOFOLINATE MEDAC [Concomitant]
     Active Substance: LEVOLEUCOVORIN DISODIUM
     Route: 042
     Dates: start: 20210712, end: 20210712
  9. AVODART [Concomitant]
     Active Substance: DUTASTERIDE
     Route: 048
  10. CORDARONE [Concomitant]
     Active Substance: AMIODARONE HYDROCHLORIDE
     Route: 048
  11. SOLDESAM [Concomitant]
     Active Substance: DEXAMETHASONE
     Route: 042
     Dates: start: 20210712, end: 20210712
  12. TRIMETON [Concomitant]
     Active Substance: CHLORPHENIRAMINE MALEATE
     Route: 042
     Dates: start: 20210712, end: 20210712

REACTIONS (3)
  - Device dislocation [Recovering/Resolving]
  - Administration site extravasation [Recovering/Resolving]
  - Administration site discomfort [Recovering/Resolving]

NARRATIVE: CASE EVENT DATE: 20210713
